FAERS Safety Report 12865488 (Version 1)
Quarter: 2016Q4

REPORT INFORMATION
  Report Type: Spontaneous
  Country: US (occurrence: US)
  Receive Date: 20161019
  Receipt Date: 20161019
  Transmission Date: 20170207
  Serious: Yes (Death)
  Sender: FDA-Public Use
  Company Number: None

PATIENT
  Age: 62 Year
  Sex: Male

DRUGS (1)
  1. PROGRAF [Suspect]
     Active Substance: TACROLIMUS\TACROLIMUS ANHYDROUS
     Indication: LARGE INTESTINE BENIGN NEOPLASM
     Route: 048
     Dates: start: 20110913, end: 20161018

REACTIONS (1)
  - Death [None]

NARRATIVE: CASE EVENT DATE: 20161019
